FAERS Safety Report 9741600 (Version 6)
Quarter: 2017Q1

REPORT INFORMATION
  Report Type: Report from Study
  Country: BR (occurrence: BR)
  Receive Date: 20131210
  Receipt Date: 20170228
  Transmission Date: 20170429
  Serious: Yes (Disabling, Other)
  Sender: FDA-Public Use
  Company Number: BR-ROCHE-1312097

PATIENT
  Age: 60 Year
  Sex: Female
  Weight: 42 kg

DRUGS (14)
  1. MABTHERA [Suspect]
     Active Substance: RITUXIMAB
     Indication: RHEUMATOID ARTHRITIS
     Dosage: IN MAR/2013, AUG/2013, SHE RECEIVED THE LAST DOSE OF RITUXIMAB. ON 05/JAN/2016
     Route: 042
     Dates: start: 201208
  2. ARAVA [Suspect]
     Active Substance: LEFLUNOMIDE
     Indication: RHEUMATOID ARTHRITIS
     Route: 065
  3. MONOCORDIL [Concomitant]
     Active Substance: ISOSORBIDE MONONITRATE
  4. CLOPIDOGREL [Concomitant]
     Active Substance: CLOPIDOGREL BISULFATE
  5. PARACETAMOL [Concomitant]
     Active Substance: ACETAMINOPHEN
     Indication: PREMEDICATION
  6. DEXAMETHASONE. [Concomitant]
     Active Substance: DEXAMETHASONE
     Route: 065
  7. LEFLUNOMIDE. [Concomitant]
     Active Substance: LEFLUNOMIDE
     Indication: RHEUMATOID ARTHRITIS
  8. SELOZOK [Concomitant]
     Active Substance: METOPROLOL SUCCINATE
     Indication: CARDIAC DISORDER
  9. PARACETAMOL [Concomitant]
     Active Substance: ACETAMINOPHEN
     Indication: PAIN
  10. ALENDRONATE [Concomitant]
     Active Substance: ALENDRONATE SODIUM
     Indication: BONE DISORDER
  11. CILOSTAZOL. [Concomitant]
     Active Substance: CILOSTAZOL
     Indication: CARDIAC DISORDER
  12. ASA [Concomitant]
     Active Substance: ASPIRIN
  13. SIMVASTATIN. [Concomitant]
     Active Substance: SIMVASTATIN
  14. ASA [Concomitant]
     Active Substance: ASPIRIN

REACTIONS (21)
  - Eczema nummular [Unknown]
  - Urinary tract infection [Unknown]
  - Arthralgia [Not Recovered/Not Resolved]
  - Malaise [Recovering/Resolving]
  - Oxygen saturation decreased [Recovering/Resolving]
  - Impaired self-care [Not Recovered/Not Resolved]
  - Hypotension [Recovering/Resolving]
  - Nervousness [Unknown]
  - Wound [Unknown]
  - Heart rate decreased [Recovering/Resolving]
  - Somnolence [Recovering/Resolving]
  - Anxiety [Unknown]
  - Bacterial infection [Recovered/Resolved]
  - Rheumatoid arthritis [Not Recovered/Not Resolved]
  - Pulpitis dental [Unknown]
  - Sinusitis [Unknown]
  - Hypokinesia [Not Recovered/Not Resolved]
  - Arthritis [Not Recovered/Not Resolved]
  - Weight decreased [Not Recovered/Not Resolved]
  - Insomnia [Unknown]
  - Hypersensitivity [Unknown]

NARRATIVE: CASE EVENT DATE: 20131111
